FAERS Safety Report 5699098-2 (Version None)
Quarter: 2008Q2

REPORT INFORMATION
  Report Type: 
  Country: None (occurrence: None)
  Receive Date: 20080401
  Receipt Date: 20070713
  Transmission Date: 20081010
  Serious: Yes (Other)
  Sender: FDA-Public Use
  Company Number: HQWYE090217JUL07

PATIENT
  Sex: Female

DRUGS (2)
  1. INDERAL LA [Suspect]
     Indication: ATRIAL FIBRILLATION
     Dosage: 80 MG CAPSULE *CURRENTLY TAKING 120 MG TABLETS*, ORAL
     Route: 048
     Dates: start: 20060101
  2. INDERAL LA [Suspect]
     Indication: MITRAL VALVE PROLAPSE
     Dosage: 80 MG CAPSULE *CURRENTLY TAKING 120 MG TABLETS*, ORAL
     Route: 048
     Dates: start: 20060101

REACTIONS (3)
  - DIZZINESS [None]
  - HYPERSENSITIVITY [None]
  - SWELLING [None]
